FAERS Safety Report 7438174-0 (Version None)
Quarter: 2011Q2

REPORT INFORMATION
  Report Type: 
  Country: None (occurrence: None)
  Receive Date: 20110426
  Receipt Date: 20101112
  Transmission Date: 20111010
  Serious: Yes (Other)
  Sender: FDA-Public Use
  Company Number: US-BAYER-201020570NA

PATIENT
  Age: 35 Year
  Sex: Female
  Weight: 72.562 kg

DRUGS (3)
  1. YAZ [Suspect]
     Indication: ENDOMETRIOSIS
     Dosage: UNK
     Route: 048
     Dates: start: 20080601, end: 20080901
  2. MOTRIN [Concomitant]
     Indication: PAIN
  3. ESTROGENS ESTERIFIED W/METHYLTESTOSTERONE [Concomitant]
     Dosage: UNK UNK, HS
     Route: 048

REACTIONS (15)
  - MUSCLE TWITCHING [None]
  - PAIN [None]
  - FATIGUE [None]
  - NEUROPATHY PERIPHERAL [None]
  - HYPOAESTHESIA [None]
  - VISION BLURRED [None]
  - HYPOAESTHESIA ORAL [None]
  - DIZZINESS [None]
  - PARAESTHESIA ORAL [None]
  - FACIAL PAIN [None]
  - PARAESTHESIA [None]
  - HYPOAESTHESIA FACIAL [None]
  - HEADACHE [None]
  - EYE PAIN [None]
  - ASTHENIA [None]
